FAERS Safety Report 9956180 (Version 1)
Quarter: 2014Q1

REPORT INFORMATION
  Report Type: Report from Study
  Country: US (occurrence: US)
  Receive Date: 20140304
  Receipt Date: 20140304
  Transmission Date: 20141002
  Serious: No
  Sender: FDA-Public Use
  Company Number: US-ABBVIE-13P-163-1090340-00

PATIENT
  Age: 72 Year
  Sex: Male

DRUGS (8)
  1. HUMIRA [Suspect]
     Indication: RHEUMATOID ARTHRITIS
     Dates: start: 20121117
  2. METFORMIN [Concomitant]
     Indication: DIABETES MELLITUS
  3. UNKNOWN MEDICATION [Concomitant]
     Indication: ARTHRITIS
  4. UNKNOWN MEDICATION [Concomitant]
     Indication: ARTHRITIS
  5. UNKNOWN MEDICATION [Concomitant]
     Indication: PROPHYLAXIS
  6. UNKNOWN MEDICATION [Concomitant]
     Indication: BLOOD CHOLESTEROL ABNORMAL
  7. UNKNOWN MEDICATION [Concomitant]
     Indication: PROPHYLAXIS
  8. UNKNOWN MEDICATION [Concomitant]
     Indication: RENAL IMPAIRMENT

REACTIONS (3)
  - Vitreous floaters [Not Recovered/Not Resolved]
  - Vision blurred [Not Recovered/Not Resolved]
  - Impaired work ability [Not Recovered/Not Resolved]
